FAERS Safety Report 4986000-1 (Version None)
Quarter: 2006Q2

REPORT INFORMATION
  Report Type: 
  Country: None (occurrence: None)
  Receive Date: 20060419
  Receipt Date: 20060404
  Transmission Date: 20061013
  Serious: Yes (Hospitalization)
  Sender: FDA-Public Use
  Company Number: 2006BH007370

PATIENT
  Age: 9 Year
  Sex: Male
  Weight: 36 kg

DRUGS (1)
  1. ADVATE [Suspect]
     Indication: DRUG USE FOR UNKNOWN INDICATION

REACTIONS (1)
  - CATHETER SITE CELLULITIS [None]
